FAERS Safety Report 13993236 (Version 3)
Quarter: 2018Q3

REPORT INFORMATION
  Report Type: Report from Study
  Country: BR (occurrence: BR)
  Receive Date: 20170920
  Receipt Date: 20180913
  Transmission Date: 20181010
  Serious: Yes (Hospitalization)
  Sender: FDA-Public Use
  Company Number: BR-UCBSA-2017024864

PATIENT
  Age: 21 Year
  Sex: Female
  Weight: 55 kg

DRUGS (6)
  1. LEVETIRACETAM. [Interacting]
     Active Substance: LEVETIRACETAM
     Dosage: 250 MG, 2X/DAY (BID)
     Route: 048
     Dates: start: 20170610, end: 2017
  2. LEVETIRACETAM. [Interacting]
     Active Substance: LEVETIRACETAM
     Dosage: DOSE ADJUSTMENT
     Route: 048
     Dates: start: 2017
  3. URBANIL [Suspect]
     Active Substance: CLOBAZAM
     Indication: EPILEPSY
     Dosage: 10 MG, ONCE DAILY (QD)
     Route: 048
  4. RIVOTRIL [Concomitant]
     Active Substance: CLONAZEPAM
     Indication: EPILEPSY
     Dosage: 0.250 MG, AS NEEDED (PRN)
     Route: 060
  5. LEVETIRACETAM. [Suspect]
     Active Substance: LEVETIRACETAM
     Indication: EPILEPSY
     Dosage: 500 MG, 2X/DAY (BID)
     Route: 048
     Dates: start: 201106
  6. LEVETIRACETAM. [Interacting]
     Active Substance: LEVETIRACETAM
     Dosage: UNK
     Route: 048

REACTIONS (10)
  - Seizure [Recovered/Resolved]
  - Anxiety [Not Recovered/Not Resolved]
  - Somnolence [Not Recovered/Not Resolved]
  - Hospitalisation [Unknown]
  - Hunger [Not Recovered/Not Resolved]
  - Eye movement disorder [Recovered/Resolved]
  - Nervousness [Not Recovered/Not Resolved]
  - Increased appetite [Not Recovered/Not Resolved]
  - Weight increased [Not Recovered/Not Resolved]
  - Drug interaction [Unknown]

NARRATIVE: CASE EVENT DATE: 2011
